FAERS Safety Report 8921202 (Version 2)
Quarter: 2012Q4

REPORT INFORMATION
  Report Type: 
  Country: FR (occurrence: FR)
  Receive Date: 20121121
  Receipt Date: 20121217
  Transmission Date: 20130627
  Serious: Yes (Hospitalization)
  Sender: FDA-Public Use
  Company Number: FR-BRISTOL-MYERS SQUIBB COMPANY-17131723

PATIENT
  Age: 33 Year
  Sex: Male

DRUGS (3)
  1. REYATAZ CAPS 300 MG [Suspect]
     Indication: HIV INFECTION
     Route: 048
     Dates: start: 20110908, end: 20120924
  2. NORVIR [Suspect]
     Indication: HIV INFECTION
     Dosage: Norvir 100 mg capsule
     Route: 048
     Dates: start: 20110908, end: 20120924
  3. TRUVADA [Concomitant]
     Indication: HIV INFECTION
     Dates: start: 20110908

REACTIONS (1)
  - Renal colic [Recovered/Resolved]
